FAERS Safety Report 24005549 (Version 1)
Quarter: 2024Q2

REPORT INFORMATION
  Report Type: Spontaneous
  Country: US (occurrence: None)
  Receive Date: 20240622
  Receipt Date: 20240622
  Transmission Date: 20240716
  Serious: Yes (Hospitalization)
  Sender: FDA-Public Use
  Company Number: None

PATIENT
  Age: 48 Year
  Sex: Female

DRUGS (1)
  1. FEZOLINETANT [Suspect]
     Active Substance: FEZOLINETANT
     Indication: Menopause
     Dosage: 45 MG EVERY DAY PO
     Route: 048
     Dates: start: 20240513, end: 20240606

REACTIONS (2)
  - Back pain [None]
  - Migraine [None]

NARRATIVE: CASE EVENT DATE: 20240524
